FAERS Safety Report 4804899-6 (Version None)
Quarter: 2005Q4

REPORT INFORMATION
  Report Type: 
  Country: None (occurrence: None)
  Receive Date: 20051020
  Receipt Date: 20051013
  Transmission Date: 20060501
  Serious: Yes (Hospitalization, Other)
  Sender: FDA-Public Use
  Company Number: 200519157GDDC

PATIENT
  Sex: Male

DRUGS (2)
  1. GLIBENCLAMIDE [Suspect]
     Dosage: DOSE: 5 MG 2-3 TIMES A DAY
     Dates: start: 19970101
  2. METFORMIN [Concomitant]
     Dates: start: 20030101

REACTIONS (3)
  - HYPOGLYCAEMIA [None]
  - MENTAL IMPAIRMENT [None]
  - STOMACH DISCOMFORT [None]
